FAERS Safety Report 6195205-6 (Version None)
Quarter: 2009Q2

REPORT INFORMATION
  Report Type: 
  Country: None (occurrence: None)
  Receive Date: 20090515
  Receipt Date: 20090508
  Transmission Date: 20091009
  Serious: Yes (Hospitalization)
  Sender: FDA-Public Use
  Company Number: TPA2009A00984

PATIENT
  Age: 73 Year
  Sex: Female

DRUGS (9)
  1. ACTOS [Suspect]
     Dosage: 30 MG, 1 IN 1 D, PER ORAL
     Route: 048
     Dates: end: 20090414
  2. LETAIRIS [Suspect]
     Indication: PULMONARY HYPERTENSION
     Dosage: 5 MG, 1 IN 1 D, PER ORAL
     Route: 048
     Dates: start: 20090401, end: 20090413
  3. PRAVACHOL [Concomitant]
  4. FUROSEMIDE [Concomitant]
  5. LISINOPRIL/HCT        (HYDROCHLOROTHIAZIDE, LISINOPRIL) [Concomitant]
  6. XANAX [Concomitant]
  7. TOPROL-XL [Concomitant]
  8. LANOXIN [Concomitant]
  9. COUMADIN [Concomitant]

REACTIONS (11)
  - BLOOD PH INCREASED [None]
  - CARDIAC FAILURE CONGESTIVE [None]
  - CARDIOMEGALY [None]
  - DYSPNOEA [None]
  - HOT FLUSH [None]
  - HYPOXIA [None]
  - INSOMNIA [None]
  - OEDEMA [None]
  - PICKWICKIAN SYNDROME [None]
  - PYREXIA [None]
  - WEIGHT INCREASED [None]
